FAERS Safety Report 24815769 (Version 5)
Quarter: 2025Q2

REPORT INFORMATION
  Report Type: Report from Study
  Country: US (occurrence: US)
  Receive Date: 20250107
  Receipt Date: 20250522
  Transmission Date: 20250717
  Serious: Yes (Other)
  Sender: TAKEDA
  Company Number: US-TAKEDA-2024TUS054691

PATIENT
  Sex: Female
  Weight: 77 kg

DRUGS (18)
  1. ECALLANTIDE [Suspect]
     Active Substance: ECALLANTIDE
     Indication: Immune system disorder
  2. BENADRYL [Suspect]
     Active Substance: DIPHENHYDRAMINE HYDROCHLORIDE
     Indication: Product used for unknown indication
  3. HAEGARDA [Suspect]
     Active Substance: HUMAN C1-ESTERASE INHIBITOR
     Indication: Product used for unknown indication
  4. EPINEPHRINE [Concomitant]
     Active Substance: EPINEPHRINE
  5. VITAMIN C [Concomitant]
     Active Substance: ASCORBIC ACID
  6. ALLEGRA ALLERGY [Concomitant]
     Active Substance: FEXOFENADINE HYDROCHLORIDE
  7. SODIUM CHLORIDE [Concomitant]
     Active Substance: SODIUM CHLORIDE
  8. VITAMIN D3 [Concomitant]
     Active Substance: CHOLECALCIFEROL
  9. POTASSIUM [Concomitant]
     Active Substance: POTASSIUM
  10. PRADAXA [Concomitant]
     Active Substance: DABIGATRAN ETEXILATE MESYLATE
  11. Nac [Concomitant]
  12. BERINERT [Concomitant]
     Active Substance: HUMAN C1-ESTERASE INHIBITOR
  13. MONTELUKAST SODIUM [Concomitant]
     Active Substance: MONTELUKAST SODIUM
  14. DIPHENHYDRAMINE HYDROCHLORIDE [Concomitant]
     Active Substance: DIPHENHYDRAMINE HYDROCHLORIDE
  15. FAMOTIDINE [Concomitant]
     Active Substance: FAMOTIDINE
  16. SODIUM CHLORIDE [Concomitant]
     Active Substance: SODIUM CHLORIDE
  17. CROMOLYN SODIUM [Concomitant]
     Active Substance: CROMOLYN SODIUM
  18. QUERCETIN [Concomitant]
     Active Substance: QUERCETIN

REACTIONS (11)
  - Loss of consciousness [Unknown]
  - Syncope [Unknown]
  - Anaphylactic reaction [Unknown]
  - Drug hypersensitivity [Unknown]
  - Product supply issue [Unknown]
  - Product dose omission issue [Unknown]
  - Stress [Unknown]
  - Feeling cold [Unknown]
  - Chills [Unknown]
  - Product availability issue [Unknown]
  - Hereditary angioedema [Unknown]
